FAERS Safety Report 18521484 (Version 1)
Quarter: 2020Q4

REPORT INFORMATION
  Report Type: Spontaneous
  Country: GR (occurrence: GR)
  Receive Date: 20201119
  Receipt Date: 20201119
  Transmission Date: 20210114
  Serious: Yes (Other)
  Sender: FDA-Public Use
  Company Number: NVSC2020GR304118

PATIENT
  Age: 11 Year
  Sex: Male

DRUGS (1)
  1. MAXIDEX [Suspect]
     Active Substance: DEXAMETHASONE
     Indication: UVEITIS
     Dosage: UNK
     Route: 065
     Dates: start: 202006

REACTIONS (1)
  - Pneumonia mycoplasmal [Not Recovered/Not Resolved]
